FAERS Safety Report 5397800-0 (Version None)
Quarter: 2007Q3

REPORT INFORMATION
  Report Type: 
  Country: None (occurrence: None)
  Receive Date: 20070723
  Receipt Date: 20070709
  Transmission Date: 20080115
  Serious: Yes (Other)
  Sender: FDA-Public Use
  Company Number: 2007P1000347

PATIENT
  Age: 3 Year
  Sex: Female

DRUGS (4)
  1. BUSULFEX [Suspect]
     Indication: STEM CELL TRANSPLANT
     Dosage: 2 MG/KG; BID; IV
     Route: 042
  2. RIFAMPICIN [Suspect]
     Indication: MYCOBACTERIAL INFECTION
  3. AZITHROMYCIN [Concomitant]
  4. LEVOFLOXACIN [Concomitant]

REACTIONS (3)
  - DRUG CLEARANCE INCREASED [None]
  - DRUG INTERACTION [None]
  - DRUG LEVEL DECREASED [None]
